FAERS Safety Report 5924940-7 (Version None)
Quarter: 2008Q4

REPORT INFORMATION
  Report Type: 
  Country: None (occurrence: None)
  Receive Date: 20081020
  Receipt Date: 20081020
  Transmission Date: 20090506
  Serious: Yes (Life-Threatening)
  Sender: FDA-Public Use
  Company Number: None

PATIENT
  Age: 31 Year
  Sex: Female
  Weight: 58.9676 kg

DRUGS (1)
  1. ZOLOFT [Suspect]
     Indication: PREMENSTRUAL SYNDROME
     Dosage: 100MG DAILY PO
     Route: 048
     Dates: start: 20060817, end: 20081017

REACTIONS (6)
  - ADVERSE DRUG REACTION [None]
  - ECONOMIC PROBLEM [None]
  - LOSS OF EMPLOYMENT [None]
  - MENTAL DISORDER [None]
  - SUICIDAL IDEATION [None]
  - TREATMENT NONCOMPLIANCE [None]
